FAERS Safety Report 13306586 (Version 1)
Quarter: 2017Q1

REPORT INFORMATION
  Report Type: Spontaneous
  Country: US (occurrence: US)
  Receive Date: 20170308
  Receipt Date: 20170308
  Transmission Date: 20170428
  Serious: No
  Sender: FDA-Public Use
  Company Number: US-AKORN PHARMACEUTICALS-2016AKN00688

PATIENT
  Age: 33 Year
  Sex: Female

DRUGS (11)
  1. CALCIUM CARBONATE; VITAMIN D [Concomitant]
     Dosage: UNK UNK, 1X/DAY
     Route: 048
  2. MYORISAN [Suspect]
     Active Substance: ISOTRETINOIN
     Indication: ACNE
     Dosage: 1 CAPSULES, 2X/DAY
     Route: 048
     Dates: start: 20160614, end: 20161002
  3. NORCO [Concomitant]
     Active Substance: ACETAMINOPHEN\HYDROCODONE BITARTRATE
     Dosage: 1 TABLETS, AS NEEDED EVERY 8 HOURS
  4. MOBIC [Concomitant]
     Active Substance: MELOXICAM
     Dosage: 1 TABLETS, 1X/DAY
  5. PRILOSEC [Concomitant]
     Active Substance: OMEPRAZOLE MAGNESIUM
     Dosage: 1 CAPSULES, 2X/DAY
  6. MYORISAN [Suspect]
     Active Substance: ISOTRETINOIN
     Indication: ACNE
     Dosage: 1 CAPSULES, 2X/DAY
     Route: 048
     Dates: start: 20160516, end: 2016
  7. WELLBUTRIN XL [Concomitant]
     Active Substance: BUPROPION HYDROCHLORIDE
     Dosage: 1 TABLETS, 1X/DAY
  8. VITAMIN B12 [Concomitant]
     Active Substance: CYANOCOBALAMIN
     Dosage: UNK, 1X/DAY
     Route: 048
  9. KENALOG [Concomitant]
     Active Substance: TRIAMCINOLONE ACETONIDE
     Dosage: UNK, AS NEEDED
     Route: 061
  10. LIDODERM [Concomitant]
     Active Substance: LIDOCAINE
     Dosage: UNK
  11. ULTRAM [Concomitant]
     Active Substance: TRAMADOL HYDROCHLORIDE
     Dosage: 1 TABLETS, 3X/DAY
     Route: 048

REACTIONS (3)
  - Abdominal discomfort [Recovered/Resolved]
  - Nausea [Recovered/Resolved]
  - Diarrhoea [Recovered/Resolved]

NARRATIVE: CASE EVENT DATE: 2016
